FAERS Safety Report 16968902 (Version 1)
Quarter: 2019Q4

REPORT INFORMATION
  Report Type: Spontaneous
  Country: SE (occurrence: SE)
  Receive Date: 20191029
  Receipt Date: 20191029
  Transmission Date: 20200122
  Serious: Yes (Death, Other)
  Sender: FDA-Public Use
  Company Number: SE-SCIEGEN PHARMACEUTICALS INC-2019SCILIT00324

PATIENT
  Age: 55 Year
  Sex: Male

DRUGS (5)
  1. ANGIOTENSIN CONVERTING ENZYME INHIBITORS [Interacting]
     Active Substance: UNSPECIFIED INGREDIENT
  2. NONSTEROIDAL ANTI-INFLAMMATORY DRUGS [Suspect]
     Active Substance: UNSPECIFIED INGREDIENT
  3. ANGIOTENSIN II RECEPTOR BLOCKER [Interacting]
     Active Substance: UNSPECIFIED INGREDIENT
  4. METFORMIN HYDROCHLORIDETABLETS [Suspect]
     Active Substance: METFORMIN HYDROCHLORIDE
  5. ALCOHOL. [Interacting]
     Active Substance: ALCOHOL

REACTIONS (4)
  - Alcohol interaction [Unknown]
  - Drug interaction [Unknown]
  - Toxicity to various agents [Fatal]
  - Pyelonephritis acute [Fatal]
